FAERS Safety Report 5113511-0 (Version None)
Quarter: 2006Q3

REPORT INFORMATION
  Report Type: 
  Country: None (occurrence: None)
  Receive Date: 20060921
  Receipt Date: 20060911
  Transmission Date: 20061208
  Serious: Yes (Hospitalization, Other)
  Sender: FDA-Public Use
  Company Number: 2006110335

PATIENT
  Sex: Male
  Weight: 59.8748 kg

DRUGS (8)
  1. ZOLOFT [Suspect]
     Indication: DEPRESSION
     Dosage: 150 MG (150 MG, 1 IN 1 D)
  2. PLAVIX [Concomitant]
  3. LISINOPRIL [Concomitant]
  4. MAGNESIUM OXIDE (MAGNESIUM OXIDE) [Concomitant]
  5. AVANDIA [Concomitant]
  6. HYDROCHLOROTHIAZIDE [Concomitant]
  7. ALL OTHER THERAPEUTIC PRODUCTS (ALL OTHER THERAPEUTIC PRODUCTS) [Concomitant]
  8. POTASSIUM (POTASSIUM) [Concomitant]

REACTIONS (9)
  - CORONARY ARTERIAL STENT INSERTION [None]
  - DEMENTIA [None]
  - EAR NEOPLASM MALIGNANT [None]
  - GASTRIC ULCER HAEMORRHAGE [None]
  - HIP ARTHROPLASTY [None]
  - INCORRECT DOSE ADMINISTERED [None]
  - PROSTATE CANCER [None]
  - SUICIDAL IDEATION [None]
  - URINARY TRACT INFECTION [None]
